FAERS Safety Report 7324589-8 (Version None)
Quarter: 2011Q1

REPORT INFORMATION
  Report Type: 
  Country: None (occurrence: None)
  Receive Date: 20110301
  Receipt Date: 20110223
  Transmission Date: 20110831
  Serious: Yes (Other)
  Sender: FDA-Public Use
  Company Number: DE-PFIZER INC-2011027682

PATIENT
  Age: 57 Year
  Sex: Male
  Weight: 82.5 kg

DRUGS (2)
  1. VITAMIN B-12 [Concomitant]
     Dosage: UNK
     Dates: start: 20060101
  2. LYRICA [Suspect]
     Indication: NEURALGIA
     Dosage: UNK
     Route: 048
     Dates: start: 20060201

REACTIONS (3)
  - BENIGN PROSTATIC HYPERPLASIA [None]
  - LEUKOPENIA [None]
  - THROMBOCYTOPENIA [None]
